FAERS Safety Report 6068517-4 (Version None)
Quarter: 2009Q1

REPORT INFORMATION
  Report Type: 
  Country: None (occurrence: None)
  Receive Date: 20090206
  Receipt Date: 20090126
  Transmission Date: 20090719
  Serious: Yes (Other)
  Sender: FDA-Public Use
  Company Number: JP-JNJFOC-20090200282

PATIENT
  Sex: Female
  Weight: 69 kg

DRUGS (19)
  1. REMICADE [Suspect]
     Route: 042
  2. REMICADE [Suspect]
     Route: 042
  3. REMICADE [Suspect]
     Route: 042
  4. REMICADE [Suspect]
     Route: 042
  5. REMICADE [Suspect]
     Route: 042
  6. REMICADE [Suspect]
     Indication: PSORIASIS
     Route: 042
  7. CALSLOT [Concomitant]
     Indication: HYPERTENSION
     Route: 048
  8. URSO 250 [Concomitant]
     Indication: ALCOHOLIC LIVER DISEASE
     Route: 048
  9. MYSER [Concomitant]
     Indication: PSORIASIS
     Route: 061
  10. LOCOID [Concomitant]
     Indication: PSORIASIS
     Route: 061
  11. LIDOMEX [Concomitant]
     Indication: PSORIASIS
     Route: 061
  12. WHITE PETROLATUM [Concomitant]
     Indication: PSORIASIS
     Route: 061
  13. EMPECID [Concomitant]
     Indication: TINEA INFECTION
     Route: 061
  14. SUCRALFATE [Concomitant]
     Indication: GASTRITIS
     Route: 048
  15. ALLOID G [Concomitant]
     Indication: GASTRITIS
     Route: 048
  16. CARDENALIN [Concomitant]
     Indication: HYPERTENSION
     Route: 048
  17. ZYLORIC [Concomitant]
     Indication: HYPERURICAEMIA
     Route: 048
  18. BONALON [Concomitant]
     Indication: OSTEOPOROSIS PROPHYLAXIS
     Route: 048
  19. NEORAL [Concomitant]

REACTIONS (1)
  - KAPOSI'S SARCOMA [None]
